FAERS Safety Report 6697463-8 (Version None)
Quarter: 2010Q2

REPORT INFORMATION
  Report Type: 
  Country: None (occurrence: None)
  Receive Date: 20100422
  Receipt Date: 20100413
  Transmission Date: 20101027
  Serious: Yes (Hospitalization)
  Sender: FDA-Public Use
  Company Number: B0648542A

PATIENT
  Age: 89 Year
  Sex: Male

DRUGS (4)
  1. AZITHROMYCIN      (FORMULATION UNKNOWN) (GENERIC) (AZITHROMYCIN) [Suspect]
     Indication: PNEUMONIA
  2. METRONIDAZOLE (FORMATION UNKNOWN) (GENERIC) METRONIDAZOLE [Suspect]
     Indication: LEUKOCYTOSIS
  3. PIPERACILLIN AND TAZOBACTAM [Suspect]
     Indication: PNEUMONIA
  4. VANCOMYCIN [Suspect]
     Indication: LEUKOCYTOSIS

REACTIONS (8)
  - ABDOMINAL PAIN [None]
  - ACUTE GENERALISED EXANTHEMATOUS PUSTULOSIS [None]
  - BLISTER [None]
  - BLOOD BILIRUBIN INCREASED [None]
  - LEUKOCYTOSIS [None]
  - NEUTROPHILIA [None]
  - OEDEMA PERIPHERAL [None]
  - PANCREATIC NEOPLASM [None]
